FAERS Safety Report 16494704 (Version 6)
Quarter: 2021Q1

REPORT INFORMATION
  Report Type: Report from Study
  Country: US (occurrence: US)
  Receive Date: 20190628
  Receipt Date: 20210108
  Transmission Date: 20210419
  Serious: Yes (Other)
  Sender: FDA-Public Use
  Company Number: PHEH2019US026958

PATIENT
  Age: 45 Year
  Sex: Female

DRUGS (2)
  1. GILENYA [Suspect]
     Active Substance: FINGOLIMOD HYDROCHLORIDE
     Dosage: UNK
     Route: 065
     Dates: start: 20210105
  2. GILENYA [Suspect]
     Active Substance: FINGOLIMOD HYDROCHLORIDE
     Indication: MULTIPLE SCLEROSIS
     Dosage: 0.5 MG, QD
     Route: 048
     Dates: start: 20180316

REACTIONS (17)
  - Incontinence [Unknown]
  - Constipation [Unknown]
  - Platelet count decreased [Unknown]
  - Tremor [Unknown]
  - Tinea pedis [Unknown]
  - Muscle spasms [Not Recovered/Not Resolved]
  - Memory impairment [Unknown]
  - Cognitive disorder [Unknown]
  - Muscle twitching [Not Recovered/Not Resolved]
  - Multiple sclerosis [Unknown]
  - Fungal skin infection [Unknown]
  - Weight increased [Unknown]
  - Fall [Unknown]
  - Blindness [Unknown]
  - Temperature intolerance [Unknown]
  - Vulvovaginal mycotic infection [Unknown]
  - Fatigue [Unknown]

NARRATIVE: CASE EVENT DATE: 20200207
